FAERS Safety Report 11686972 (Version 1)
Quarter: 2015Q4

REPORT INFORMATION
  Report Type: Spontaneous
  Country: US (occurrence: US)
  Receive Date: 20151030
  Receipt Date: 20151030
  Transmission Date: 20160314
  Serious: No
  Sender: FDA-Public Use
  Company Number: US-BAUSCH-BL-2015-014809

PATIENT
  Age: 88 Year
  Sex: Female

DRUGS (1)
  1. BEPREVE [Suspect]
     Active Substance: BEPOTASTINE BESILATE
     Indication: CONJUNCTIVITIS ALLERGIC
     Dosage: ONE DROP.
     Route: 047
     Dates: start: 20150602, end: 20150603

REACTIONS (1)
  - Eye irritation [Recovering/Resolving]

NARRATIVE: CASE EVENT DATE: 20150603
